FAERS Safety Report 10250162 (Version 2)
Quarter: 2014Q2

REPORT INFORMATION
  Report Type: Report from Study
  Country: US (occurrence: US)
  Receive Date: 20140620
  Receipt Date: 20140620
  Transmission Date: 20141212
  Serious: Yes (Hospitalization)
  Sender: FDA-Public Use
  Company Number: US-ABBVIE-14P-163-1246401-00

PATIENT
  Age: 22 Year
  Sex: Female
  Weight: 96.25 kg

DRUGS (6)
  1. HUMIRA [Suspect]
     Indication: PSORIASIS
     Dates: start: 200911, end: 201008
  2. HUMIRA [Suspect]
     Indication: PSORIASIS
     Dates: start: 201111, end: 201202
  3. HUMIRA [Suspect]
     Indication: PSORIATIC ARTHROPATHY
     Dates: start: 201207, end: 201311
  4. ALEVE [Concomitant]
     Indication: PAIN
  5. ALEVE [Concomitant]
     Indication: PAIN
  6. UNKNOWN BIRTH CONTROL PILL [Concomitant]
     Indication: PRODUCT USED FOR UNKNOWN INDICATION

REACTIONS (16)
  - Malaise [Recovered/Resolved]
  - Pyrexia [Recovered/Resolved]
  - Herpes virus infection [Unknown]
  - Peripheral swelling [Unknown]
  - Erythema [Unknown]
  - Skin discolouration [Unknown]
  - Pain [Not Recovered/Not Resolved]
  - Joint swelling [Not Recovered/Not Resolved]
  - Psoriatic arthropathy [Unknown]
  - Oedema peripheral [Unknown]
  - Pain in extremity [Unknown]
  - Arthralgia [Unknown]
  - Arthralgia [Unknown]
  - Psoriasis [Not Recovered/Not Resolved]
  - Pain in extremity [Not Recovered/Not Resolved]
  - Pain in extremity [Not Recovered/Not Resolved]
